FAERS Safety Report 7083192-8 (Version None)
Quarter: 2010Q4

REPORT INFORMATION
  Report Type: 
  Country: None (occurrence: None)
  Receive Date: 20101104
  Receipt Date: 20101028
  Transmission Date: 20110411
  Serious: Yes (Other)
  Sender: FDA-Public Use
  Company Number: US-SANOFI-AVENTIS-2010SA066132

PATIENT
  Sex: Male

DRUGS (4)
  1. OXALIPLATIN [Suspect]
     Route: 041
  2. DOCETAXEL [Suspect]
     Route: 041
  3. CAPECITABINE [Suspect]
     Dosage: DAYS 1-14 EVRY CYCLE
     Route: 048
  4. DEXAMETHASONE [Concomitant]
     Indication: PREMEDICATION

REACTIONS (12)
  - ANAEMIA [None]
  - DEHYDRATION [None]
  - DIARRHOEA [None]
  - FATIGUE [None]
  - HYPERSENSITIVITY [None]
  - LEUKOPENIA [None]
  - NAIL DISORDER [None]
  - NAUSEA [None]
  - NEUROPATHY PERIPHERAL [None]
  - OBSTRUCTION GASTRIC [None]
  - OEDEMA PERIPHERAL [None]
  - VOMITING [None]
